FAERS Safety Report 5935216-6 (Version None)
Quarter: 2008Q4

REPORT INFORMATION
  Report Type: 
  Country: None (occurrence: None)
  Receive Date: 20081030
  Receipt Date: 20081021
  Transmission Date: 20090506
  Serious: Yes (Other)
  Sender: FDA-Public Use
  Company Number: US-ROCHE-592810

PATIENT
  Sex: Female
  Weight: 73.9 kg

DRUGS (1)
  1. CAPECITABINE [Suspect]
     Indication: BREAST CANCER
     Dosage: TWO 500 MG TABLET PER DAY AND TWO 150 MG TABLET PER DAY
     Route: 065
     Dates: start: 20080421, end: 20081007

REACTIONS (2)
  - DISEASE PROGRESSION [None]
  - DRUG INEFFECTIVE [None]
